FAERS Safety Report 26163191 (Version 2)
Quarter: 2025Q4

REPORT INFORMATION
  Report Type: Spontaneous
  Country: EU (occurrence: EU)
  Receive Date: 20251216
  Receipt Date: 20251222
  Transmission Date: 20260117
  Serious: Yes (Other)
  Sender: PFIZER
  Company Number: None

PATIENT
  Age: 62 Year
  Sex: Female

DRUGS (5)
  1. ADCETRIS [Suspect]
     Active Substance: BRENTUXIMAB VEDOTIN
     Indication: Non-Hodgkin^s lymphoma
     Dosage: 125 MG, CYCLIC
     Route: 042
     Dates: start: 20250821, end: 20251027
  2. ADCETRIS [Suspect]
     Active Substance: BRENTUXIMAB VEDOTIN
     Dosage: 1ST CYCLE ON 21AUG2025 AT 125.5 MG (1.8 MG/KG), LAST 4TH CYCLE ON 27OCT2025
     Route: 042
     Dates: start: 20250821, end: 20251027
  3. DOXORUBICIN HYDROCHLORIDE [Suspect]
     Active Substance: DOXORUBICIN HYDROCHLORIDE
     Indication: Non-Hodgkin^s lymphoma
     Dosage: 1ST CYCLE ON 21AUG2025 AT 88 MG (50.29 MG/M2), LAST CYCLE ON 27OCT2025
     Route: 042
     Dates: start: 20250821, end: 20251027
  4. CYCLOPHOSPHAMIDE [Suspect]
     Active Substance: CYCLOPHOSPHAMIDE
     Indication: Non-Hodgkin^s lymphoma
     Dosage: 1ST CYCLE ON 21AUG2025 AT 1313 MG (750.29 MG/M2), LAST CYCLE ON 27OCT2025
     Route: 042
     Dates: start: 20250821, end: 20251027
  5. PREDNISONE [Concomitant]
     Active Substance: PREDNISONE
     Indication: Non-Hodgkin^s lymphoma
     Dosage: 1ST CYCLE ON 21AUG2025 AT 100 MG (57.14 MG/M2), LAST CYCLE ON 27OCT2025
     Route: 048
     Dates: start: 20250821, end: 20251027

REACTIONS (2)
  - Hemiparaesthesia [Recovering/Resolving]
  - Hemihypoaesthesia [Recovering/Resolving]

NARRATIVE: CASE EVENT DATE: 20251031
